FAERS Safety Report 4859717-7 (Version None)
Quarter: 2005Q4

REPORT INFORMATION
  Report Type: 
  Country: None (occurrence: None)
  Receive Date: 20051219
  Receipt Date: 20030516
  Transmission Date: 20060501
  Serious: Yes (Life-Threatening, Hospitalization, Other)
  Sender: FDA-Public Use
  Company Number: CA-BRISTOL-MYERS SQUIBB COMPANY-12278693

PATIENT
  Age: 48 Year
  Sex: Male
  Weight: 90 kg

DRUGS (7)
  1. TEQUIN [Suspect]
     Indication: PNEUMONIA
     Route: 042
     Dates: start: 20030428, end: 20030505
  2. PHOSPHATE ION [Concomitant]
     Route: 048
  3. MORPHINE [Concomitant]
     Dosage: 50 MG ON 28-APR, 250 MG ON 29-APR-2003, 2 MG ON 6-MAY-2003
     Route: 042
     Dates: start: 20030428
  4. POTASSIUM CHLORIDE [Concomitant]
     Dosage: 20 ML/L AT 17 ML/L PER HOUR
     Route: 042
  5. CLOTRIMAZOLE [Concomitant]
     Route: 061
  6. MERREM [Concomitant]
     Route: 042
     Dates: start: 20030418, end: 20030428
  7. RED BLOOD CELLS [Concomitant]

REACTIONS (3)
  - DIARRHOEA [None]
  - HYPERGLYCAEMIA [None]
  - HYPOGLYCAEMIA [None]
